APPROVED DRUG PRODUCT: AMPICILLIN SODIUM
Active Ingredient: AMPICILLIN SODIUM
Strength: EQ 250MG BASE/VIAL
Dosage Form/Route: INJECTABLE;INJECTION
Application: A061936 | Product #001
Applicant: CONSOLIDATED PHARMACEUTICAL GROUP INC
Approved: Approved Prior to Jan 1, 1982 | RLD: No | RS: No | Type: DISCN